FAERS Safety Report 5000925-2 (Version None)
Quarter: 2006Q2

REPORT INFORMATION
  Report Type: 
  Country: None (occurrence: None)
  Receive Date: 20060512
  Receipt Date: 20051230
  Transmission Date: 20061013
  Serious: Yes (Hospitalization)
  Sender: FDA-Public Use
  Company Number: US-MERCK-0601USA00123

PATIENT
  Age: 49 Year
  Sex: Female
  Weight: 61 kg

DRUGS (2)
  1. VIOXX [Suspect]
     Indication: FIBROMYALGIA
     Route: 048
     Dates: start: 20011126
  2. PREMARIN [Concomitant]
     Route: 065

REACTIONS (16)
  - ARTERIAL OCCLUSIVE DISEASE [None]
  - ASTHMA [None]
  - CEREBRAL ARTERY STENOSIS [None]
  - CEREBRAL ATROPHY [None]
  - CEREBROVASCULAR ACCIDENT [None]
  - CHEST PAIN [None]
  - CORONARY ARTERY OCCLUSION [None]
  - COSTOCHONDRITIS [None]
  - FIBROMYALGIA [None]
  - GLIOSIS [None]
  - HEADACHE [None]
  - HYPERLIPIDAEMIA [None]
  - HYPERTENSION [None]
  - IRRITABLE BOWEL SYNDROME [None]
  - LACUNAR INFARCTION [None]
  - POSTMENOPAUSE [None]
